FAERS Safety Report 11236208 (Version 4)
Quarter: 2015Q3

REPORT INFORMATION
  Report Type: Spontaneous
  Country: CA (occurrence: CA)
  Receive Date: 20150702
  Receipt Date: 20150827
  Transmission Date: 20151125
  Serious: Yes (Life-Threatening, Other)
  Sender: FDA-Public Use
  Company Number: CA-BAXALTA-2015BAX033025

PATIENT
  Sex: Female
  Weight: 45 kg

DRUGS (14)
  1. OBIZUR [Suspect]
     Active Substance: ANTIHEMOPHILIC FACTOR PORCINE, B-DOMAIN TRUNCATED RECOMBINANT
     Indication: GASTROINTESTINAL HAEMORRHAGE
     Dosage: 5000 IU, ONCE
     Route: 042
     Dates: start: 20150617, end: 20150617
  2. OBIZUR [Suspect]
     Active Substance: ANTIHEMOPHILIC FACTOR PORCINE, B-DOMAIN TRUNCATED RECOMBINANT
     Indication: INTRA-ABDOMINAL HAEMORRHAGE
     Dosage: 5000 IU, ONCE
     Route: 042
     Dates: start: 20150618, end: 20150618
  3. NIASTASE [Suspect]
     Active Substance: COAGULATION FACTOR VIIA RECOMBINANT HUMAN
     Indication: INTRA-ABDOMINAL HAEMORRHAGE
  4. FEIBA NF [Suspect]
     Active Substance: ANTI-INHIBITOR COAGULANT COMPLEX
     Indication: OFF LABEL USE
  5. PROTHROMBIN COMPLEX [Suspect]
     Active Substance: COAGULATION FACTOR IX HUMAN\COAGULATION FACTOR VII HUMAN\COAGULATION FACTOR X HUMAN\PROTEIN C\PROTEIN S HUMAN\PROTHROMBIN
     Indication: PRODUCT USED FOR UNKNOWN INDICATION
  6. FEIBA NF [Suspect]
     Active Substance: ANTI-INHIBITOR COAGULANT COMPLEX
     Indication: ACQUIRED HAEMOPHILIA
     Dosage: MAXIMUM DOSE
     Route: 065
  7. OBIZUR [Suspect]
     Active Substance: ANTIHEMOPHILIC FACTOR PORCINE, B-DOMAIN TRUNCATED RECOMBINANT
     Indication: FACTOR VIII INHIBITION
     Dosage: 5000 IU, ONCE
     Route: 042
     Dates: start: 20150622, end: 20150622
  8. OBIZUR [Suspect]
     Active Substance: ANTIHEMOPHILIC FACTOR PORCINE, B-DOMAIN TRUNCATED RECOMBINANT
     Dosage: 5000 IU, ONCE
     Route: 042
     Dates: start: 20150623, end: 20150623
  9. OBIZUR [Suspect]
     Active Substance: ANTIHEMOPHILIC FACTOR PORCINE, B-DOMAIN TRUNCATED RECOMBINANT
     Dosage: 5000 IU, ONCE
     Route: 042
     Dates: start: 20150623, end: 20150623
  10. FACTOR VIIA, RECOMBINANT [Suspect]
     Active Substance: COAGULATION FACTOR VIIA RECOMBINANT HUMAN
     Indication: PRODUCT USED FOR UNKNOWN INDICATION
  11. FEIBA NF [Suspect]
     Active Substance: ANTI-INHIBITOR COAGULANT COMPLEX
     Indication: INTRA-ABDOMINAL HAEMORRHAGE
  12. OBIZUR [Suspect]
     Active Substance: ANTIHEMOPHILIC FACTOR PORCINE, B-DOMAIN TRUNCATED RECOMBINANT
     Dosage: 5000 IU, ONCE
     Route: 042
     Dates: start: 20150624, end: 20150624
  13. OBIZUR [Suspect]
     Active Substance: ANTIHEMOPHILIC FACTOR PORCINE, B-DOMAIN TRUNCATED RECOMBINANT
     Dosage: 5000 IU, ONCE
     Route: 042
     Dates: start: 20150625, end: 20150625
  14. NIASTASE [Suspect]
     Active Substance: COAGULATION FACTOR VIIA RECOMBINANT HUMAN
     Indication: ACQUIRED HAEMOPHILIA
     Dosage: MAXIMUM DOSE
     Route: 065

REACTIONS (4)
  - Haemorrhage [Recovering/Resolving]
  - Drug effect decreased [Recovering/Resolving]
  - Inhibiting antibodies [Recovered/Resolved]
  - Therapy responder [Unknown]
